FAERS Safety Report 11003859 (Version 1)
Quarter: 2015Q2

REPORT INFORMATION
  Report Type: Spontaneous
  Country: US (occurrence: None)
  Receive Date: 20150408
  Receipt Date: 20150408
  Transmission Date: 20150821
  Serious: Yes (Hospitalization, Disabling)
  Sender: FDA-Public Use
  Company Number: None

PATIENT
  Age: 59 Year
  Sex: Female
  Weight: 67.59 kg

DRUGS (10)
  1. 5 STENTS IMPLANTED [Concomitant]
  2. COQ10 [Concomitant]
     Active Substance: UBIDECARENONE
  3. VITAMIN B12 [Concomitant]
     Active Substance: CYANOCOBALAMIN
  4. LYSEIN [Concomitant]
  5. MULTI-VITAMINS [Concomitant]
  6. PLAVIX [Concomitant]
     Active Substance: CLOPIDOGREL BISULFATE
  7. VITAMIN C [Concomitant]
     Active Substance: ASCORBIC ACID
  8. MAGNESIUM [Concomitant]
     Active Substance: MAGNESIUM
  9. LEVOFLOXACIN 750 MG [Suspect]
     Active Substance: LEVOFLOXACIN
     Indication: LOCALISED INFECTION
     Route: 048
     Dates: start: 20150403, end: 20150405
  10. CHROMIUM [Concomitant]
     Active Substance: CHROMIC CHLORIDE\CHROMIUM

REACTIONS (14)
  - Confusional state [None]
  - Tremor [None]
  - Dysgeusia [None]
  - Dizziness [None]
  - Tinnitus [None]
  - Arthralgia [None]
  - Headache [None]
  - Neuropathy peripheral [None]
  - Blood glucose increased [None]
  - Musculoskeletal stiffness [None]
  - Palpitations [None]
  - Insomnia [None]
  - Eye irritation [None]
  - Anxiety [None]

NARRATIVE: CASE EVENT DATE: 20150405
